FAERS Safety Report 20813909 (Version 3)
Quarter: 2024Q3

REPORT INFORMATION
  Report Type: Report from Study
  Country: US (occurrence: US)
  Receive Date: 20220511
  Receipt Date: 20240723
  Transmission Date: 20241017
  Serious: Yes (Other)
  Sender: TAKEDA
  Company Number: US-TAKEDA-US202019569

PATIENT
  Age: 54 Year
  Sex: Female

DRUGS (3)
  1. HUMAN IMMUNOGLOBULIN G\HYALURONIDASE RECOMBINANT HUMAN [Suspect]
     Active Substance: HUMAN IMMUNOGLOBULIN G\HYALURONIDASE (HUMAN RECOMBINANT)
     Indication: Primary immunodeficiency syndrome
     Dosage: 40 GRAM, MONTHLY
     Route: 065
  2. HUMAN IMMUNOGLOBULIN G\HYALURONIDASE RECOMBINANT HUMAN [Suspect]
     Active Substance: HUMAN IMMUNOGLOBULIN G\HYALURONIDASE (HUMAN RECOMBINANT)
     Indication: Selective IgG subclass deficiency
     Dosage: 40 GRAM, Q4WEEKS
     Route: 065
  3. HUMAN IMMUNOGLOBULIN G\HYALURONIDASE RECOMBINANT HUMAN [Suspect]
     Active Substance: HUMAN IMMUNOGLOBULIN G\HYALURONIDASE (HUMAN RECOMBINANT)
     Dosage: UNK
     Route: 058

REACTIONS (19)
  - Malignant neoplasm of eye [Unknown]
  - Pulmonary mass [Unknown]
  - Influenza [Unknown]
  - Chest pain [Unknown]
  - Abdominal pain upper [Unknown]
  - Fibromyalgia [Unknown]
  - Sinusitis [Unknown]
  - Wrist fracture [Unknown]
  - Inappropriate schedule of product administration [Unknown]
  - Road traffic accident [Unknown]
  - Sleep apnoea syndrome [Unknown]
  - Candida infection [Unknown]
  - Lip pain [Unknown]
  - Blood cholesterol abnormal [Unknown]
  - Blood pressure decreased [Unknown]
  - Oropharyngeal pain [Unknown]
  - Back pain [Unknown]
  - Malaise [Unknown]
  - Fatigue [Unknown]

NARRATIVE: CASE EVENT DATE: 20220502
